FAERS Safety Report 9395477 (Version 1)
Quarter: 2013Q3

REPORT INFORMATION
  Report Type: Spontaneous
  Country: US (occurrence: US)
  Receive Date: 20130711
  Receipt Date: 20130711
  Transmission Date: 20140515
  Serious: Yes (Other)
  Sender: FDA-Public Use
  Company Number: US-ASTELLAS-2013US006053

PATIENT
  Sex: Male

DRUGS (2)
  1. MYRBETRIQ [Suspect]
     Indication: PRODUCT USED FOR UNKNOWN INDICATION
     Dosage: 25 MG, UNKNOWN/D
     Dates: start: 201304, end: 2013
  2. MYRBETRIQ [Suspect]
     Dosage: 25 MG, UNKNOWN/D
     Route: 048
     Dates: start: 2013

REACTIONS (5)
  - Urinary tract infection [Unknown]
  - Constipation [Unknown]
  - Gait disturbance [Unknown]
  - Nocturia [Unknown]
  - Urine output decreased [Unknown]
